FAERS Safety Report 8287649-3 (Version None)
Quarter: 2012Q2

REPORT INFORMATION
  Report Type: 
  Country: None (occurrence: None)
  Receive Date: 20120411
  Receipt Date: 20120327
  Transmission Date: 20120825
  Serious: Yes (Other)
  Sender: FDA-Public Use
  Company Number: FK201201000

PATIENT
  Age: 42 Year
  Sex: Male

DRUGS (4)
  1. METHIMAZOLE [Concomitant]
  2. SODIUM CHLORIDE [Concomitant]
  3. ATENOLOL [Concomitant]
  4. METHYLPREDNISOLONE [Suspect]
     Dosage: 1 G IN 500ML OF NORMAL SALINE

REACTIONS (3)
  - BLOOD CREATINE PHOSPHOKINASE INCREASED [None]
  - HYPOKALAEMIA [None]
  - PARALYSIS FLACCID [None]
